FAERS Safety Report 10700580 (Version 2)
Quarter: 2015Q1

REPORT INFORMATION
  Report Type: Spontaneous
  Country: JP (occurrence: JP)
  Receive Date: 20150109
  Receipt Date: 20150130
  Transmission Date: 20150721
  Serious: Yes (Hospitalization)
  Sender: FDA-Public Use
  Company Number: JP-PFIZER INC-2015003841

PATIENT
  Age: 75 Year
  Sex: Male
  Weight: 71 kg

DRUGS (6)
  1. AMLODIPINE BESILATE [Suspect]
     Active Substance: AMLODIPINE BESYLATE
     Dosage: 5 MG, 2X/DAY
     Route: 048
     Dates: end: 20141114
  2. YOKUKAN-SAN [Suspect]
     Active Substance: UNSPECIFIED INGREDIENT
     Dosage: 2.5 G, 3X/DAY
     Route: 048
     Dates: end: 20141024
  3. ZOSYN [Concomitant]
     Active Substance: PIPERACILLIN SODIUM\TAZOBACTAM SODIUM
  4. WINTERMIN [Suspect]
     Active Substance: PROMAZINE
     Dosage: 25 MG, 3X/DAY
     Route: 048
     Dates: end: 20141024
  5. LAMICTAL [Suspect]
     Active Substance: LAMOTRIGINE
     Dosage: 25 MG, 2X/DAY
     Route: 048
     Dates: end: 20141114
  6. MEROPEN [Concomitant]
     Active Substance: MEROPENEM

REACTIONS (1)
  - Hepatic function abnormal [Recovering/Resolving]

NARRATIVE: CASE EVENT DATE: 201410
